FAERS Safety Report 25954371 (Version 1)
Quarter: 2025Q4

REPORT INFORMATION
  Report Type: Spontaneous
  Country: EU (occurrence: EU)
  Receive Date: 20251023
  Receipt Date: 20251023
  Transmission Date: 20260117
  Serious: Yes (Other)
  Sender: ABBVIE
  Company Number: EU-ABBVIE-6505261

PATIENT
  Age: 60 Year
  Sex: Male

DRUGS (1)
  1. ADALIMUMAB [Suspect]
     Active Substance: ADALIMUMAB
     Indication: Psoriasis
     Route: 058
     Dates: start: 202207

REACTIONS (7)
  - Drug-induced liver injury [Unknown]
  - Liver function test increased [Unknown]
  - Hepatic steatosis [Unknown]
  - Hepatic cytolysis [Unknown]
  - Metabolic dysfunction-associated liver disease [Unknown]
  - Liver-kidney microsomal antibody positive [Unknown]
  - Antimitochondrial antibody positive [Unknown]
